FAERS Safety Report 26172025 (Version 1)
Quarter: 2025Q4

REPORT INFORMATION
  Report Type: Spontaneous
  Country: EU (occurrence: EU)
  Receive Date: 20251217
  Receipt Date: 20251217
  Transmission Date: 20260119
  Serious: Yes (Other)
  Sender: BOEHRINGER INGELHEIM
  Company Number: EU-BoehringerIngelheim-2025-BI-114526

PATIENT
  Age: 69 Year
  Sex: Male
  Weight: 58 kg

DRUGS (7)
  1. OFEV [Suspect]
     Active Substance: NINTEDANIB
     Indication: Idiopathic pulmonary fibrosis
     Dates: start: 202111
  2. PIRFENIDONE [Suspect]
     Active Substance: PIRFENIDONE
     Indication: Idiopathic pulmonary fibrosis
     Dosage: 2 MORNING, NOON + EVENING
     Dates: start: 202502, end: 202510
  3. OXYGEN [Concomitant]
     Active Substance: OXYGEN
  4. PREDNISONE [Concomitant]
     Active Substance: PREDNISONE
     Dosage: 2.5 MG PER DAY, EVERY OTHER DAY
  5. BISOPROLOL 2.5 mg / HYDROCHLOROTHIAZIDE 6.25 mg [Concomitant]
     Dosage: 1 PER DAY
  6. CALCIUM CARBONATE\CHOLECALCIFEROL [Concomitant]
     Active Substance: CALCIUM CARBONATE\CHOLECALCIFEROL
     Dosage: 500 MG/1000UI?1 PER DAY
  7. LOPERAMIDE [Concomitant]
     Active Substance: LOPERAMIDE
     Dosage: 1 TABLET ON DEMAND

REACTIONS (2)
  - Prostate cancer [Recovered/Resolved]
  - Disease progression [Unknown]

NARRATIVE: CASE EVENT DATE: 20220101
